FAERS Safety Report 18923990 (Version 1)
Quarter: 2021Q1

REPORT INFORMATION
  Report Type: Spontaneous
  Country: JP (occurrence: JP)
  Receive Date: 20210222
  Receipt Date: 20210222
  Transmission Date: 20210420
  Serious: Yes (Hospitalization, Other)
  Sender: FDA-Public Use
  Company Number: NVSJ2021JP002978

PATIENT
  Sex: Male

DRUGS (1)
  1. PARLODEL [Suspect]
     Active Substance: BROMOCRIPTINE MESYLATE
     Indication: FOETAL EXPOSURE DURING PREGNANCY
     Dosage: MATERNAL DOSE: UNKNOWN
     Route: 064

REACTIONS (4)
  - Premature baby [Unknown]
  - Foetal exposure timing unspecified [Unknown]
  - Atelectasis neonatal [Unknown]
  - Respiratory failure [Unknown]
